FAERS Safety Report 5268168-5 (Version None)
Quarter: 2007Q1

REPORT INFORMATION
  Report Type: 
  Country: None (occurrence: None)
  Receive Date: 20070316
  Receipt Date: 20070316
  Transmission Date: 20070707
  Serious: Yes (Life-Threatening, Hospitalization, Congenital Anomaly)
  Sender: FDA-Public Use
  Company Number: None

PATIENT
  Sex: Male
  Weight: 2.7216 kg

DRUGS (1)
  1. PROZAC [Suspect]
     Indication: DEPRESSION
     Dosage: 20 MG  ONCE DAILY  PO
     Route: 048

REACTIONS (10)
  - ANKYLOGLOSSIA CONGENITAL [None]
  - CARDIAC DISORDER [None]
  - CHRONIC RESPIRATORY DISEASE [None]
  - DRUG EXPOSURE BEFORE PREGNANCY [None]
  - DRUG EXPOSURE DURING PREGNANCY [None]
  - MULTIPLE CONGENITAL ABNORMALITIES [None]
  - PREMATURE BABY [None]
  - PSYCHOMOTOR SKILLS IMPAIRED [None]
  - RESPIRATORY SYNCYTIAL VIRUS INFECTION [None]
  - TRANSPOSITION OF THE GREAT VESSELS [None]
